FAERS Safety Report 8003573-5 (Version None)
Quarter: 2011Q4

REPORT INFORMATION
  Report Type: 
  Country: None (occurrence: None)
  Receive Date: 20111222
  Receipt Date: 20111216
  Transmission Date: 20120403
  Serious: Yes (Disabling)
  Sender: FDA-Public Use
  Company Number: US-CELGENEUS-163-21880-11064048

PATIENT
  Sex: Female

DRUGS (7)
  1. REVLIMID [Suspect]
     Route: 048
     Dates: start: 20111202
  2. REVLIMID [Suspect]
     Route: 048
     Dates: start: 20110608, end: 20111111
  3. NORVASC [Concomitant]
     Indication: HYPERTENSION
     Dosage: 10 MILLIGRAM
     Route: 065
  4. REVLIMID [Suspect]
     Dosage: 15 MILLIGRAM
     Route: 048
     Dates: start: 20110603, end: 20110608
  5. ATENOLOL [Concomitant]
     Indication: HYPERTENSION
     Dosage: 100 MILLIGRAM
     Route: 065
  6. GLUCOPHAGE [Concomitant]
     Route: 065
  7. PROCRIT [Concomitant]
     Dosage: 40K UNITS
     Route: 065
     Dates: start: 20080101

REACTIONS (1)
  - SKIN ULCER [None]
